FAERS Safety Report 4596197-3 (Version None)
Quarter: 2005Q1

REPORT INFORMATION
  Report Type: 
  Country: None (occurrence: None)
  Receive Date: 20050225
  Receipt Date: 20050217
  Transmission Date: 20050727
  Serious: Yes (Other)
  Sender: FDA-Public Use
  Company Number: 200416339BCC

PATIENT
  Age: 50 Year
  Sex: Female
  Weight: 68.0396 kg

DRUGS (2)
  1. ALEVE [Suspect]
     Indication: PYREXIA
     Dosage: 220 MG, ONCE, ORAL
     Route: 048
     Dates: start: 20041127
  2. LEVOXYL [Concomitant]

REACTIONS (3)
  - BODY TEMPERATURE DECREASED [None]
  - CHEST PAIN [None]
  - HEART RATE INCREASED [None]
